FAERS Safety Report 4638181-7 (Version None)
Quarter: 2005Q2

REPORT INFORMATION
  Report Type: 
  Country: None (occurrence: None)
  Receive Date: 20050415
  Receipt Date: 20050401
  Transmission Date: 20051028
  Serious: Yes (Death, Other)
  Sender: FDA-Public Use
  Company Number: A-US2004-05750

PATIENT
  Age: 65 Year
  Sex: Male

DRUGS (10)
  1. TRACLEER [Suspect]
     Indication: PULMONARY HYPERTENSION
     Dosage: 125 MG, BID, ORAL
     Route: 048
  2. NEORAL [Concomitant]
  3. MULTIVITAMINS (ASCORBIC ACID, FOLIC ACID, ERGOCALCIFEROL, NICOTINAMIDE [Concomitant]
  4. MAGNESIUM OXIDE (MAGNESIUM OXIDE) [Concomitant]
  5. ATIVAN [Concomitant]
  6. HYDROCHLOROTHIAZIDE [Concomitant]
  7. NEXIUM [Concomitant]
  8. PROZAC [Concomitant]
  9. CALTRATE (CALCIUM CARBONATE) [Concomitant]
  10. METOPROLOL TARTRATE [Concomitant]

REACTIONS (3)
  - GENERALISED OEDEMA [None]
  - RIGHT VENTRICULAR FAILURE [None]
  - WEIGHT INCREASED [None]
